FAERS Safety Report 14161080 (Version 1)
Quarter: 2017Q4

REPORT INFORMATION
  Report Type: Spontaneous
  Country: US (occurrence: US)
  Receive Date: 20171104
  Receipt Date: 20171104
  Transmission Date: 20180321
  Serious: Yes (Other)
  Sender: FDA-Public Use
  Company Number: None

PATIENT
  Age: 49 Year
  Sex: Female
  Weight: 59.4 kg

DRUGS (2)
  1. CYMBALTA [Suspect]
     Active Substance: DULOXETINE HYDROCHLORIDE
     Indication: FIBROMYALGIA
     Dosage: ?          QUANTITY:1 CAPSULE(S);?
     Route: 048
     Dates: start: 20080925, end: 20170910
  2. CYMBALTA [Suspect]
     Active Substance: DULOXETINE HYDROCHLORIDE
     Indication: MAJOR DEPRESSION
     Dosage: ?          QUANTITY:1 CAPSULE(S);?
     Route: 048
     Dates: start: 20080925, end: 20170910

REACTIONS (35)
  - Judgement impaired [None]
  - Amnesia [None]
  - Loss of consciousness [None]
  - Headache [None]
  - Hyperhidrosis [None]
  - Pruritus [None]
  - Restless legs syndrome [None]
  - Hyperglycaemia [None]
  - Fear [None]
  - Tremor [None]
  - Dyskinesia [None]
  - Electrolyte imbalance [None]
  - Economic problem [None]
  - Altered state of consciousness [None]
  - Dehydration [None]
  - Hepatic enzyme increased [None]
  - Visual impairment [None]
  - Lethargy [None]
  - Neuralgia [None]
  - Dysgeusia [None]
  - Anger [None]
  - Insomnia [None]
  - Panic reaction [None]
  - Arrhythmia [None]
  - Urinary tract infection [None]
  - Disorientation [None]
  - Cognitive disorder [None]
  - Suicide attempt [None]
  - Confusional state [None]
  - Somnolence [None]
  - Anxiety [None]
  - Dizziness [None]
  - Crying [None]
  - Drug withdrawal syndrome [None]
  - Ketoacidosis [None]

NARRATIVE: CASE EVENT DATE: 20170920
